FAERS Safety Report 24027547 (Version 1)
Quarter: 2024Q2

REPORT INFORMATION
  Report Type: Spontaneous
  Country: US (occurrence: US)
  Receive Date: 20240628
  Receipt Date: 20240628
  Transmission Date: 20240715
  Serious: Yes (Hospitalization, Other)
  Sender: FDA-Public Use
  Company Number: None

PATIENT
  Age: 53 Year
  Sex: Female

DRUGS (2)
  1. HEPARIN [Suspect]
     Active Substance: HEPARIN SODIUM
     Indication: Portal vein thrombosis
  2. HEPARIN [Suspect]
     Active Substance: HEPARIN SODIUM
     Indication: Mesenteric vein thrombosis

REACTIONS (3)
  - Splenic infarction [Unknown]
  - Haemoperitoneum [Unknown]
  - Splenic rupture [Unknown]
